FAERS Safety Report 11090291 (Version 1)
Quarter: 2015Q2

REPORT INFORMATION
  Report Type: Spontaneous
  Country: US (occurrence: None)
  Receive Date: 20150504
  Receipt Date: 20150504
  Transmission Date: 20150821
  Serious: Yes (Other)
  Sender: FDA-Public Use
  Company Number: None

PATIENT
  Age: 33 Year
  Sex: Female
  Weight: 63.5 kg

DRUGS (5)
  1. GO-LACTA [Concomitant]
  2. FENUGREEK [Concomitant]
  3. PRENATAL VITAMINS [Concomitant]
     Active Substance: VITAMINS
  4. VITAMIN D [Concomitant]
     Active Substance: CHOLECALCIFEROL
  5. MIRENA [Suspect]
     Active Substance: LEVONORGESTREL

REACTIONS (2)
  - Product quality issue [None]
  - Suppressed lactation [None]

NARRATIVE: CASE EVENT DATE: 20150429
